FAERS Safety Report 9769992 (Version 2)
Quarter: 2013Q4

REPORT INFORMATION
  Report Type: Spontaneous
  Country: US (occurrence: US)
  Receive Date: 20131218
  Receipt Date: 20131218
  Transmission Date: 20140711
  Serious: No
  Sender: FDA-Public Use
  Company Number: US-VERTEX PHARMACEUTICALS INC-AE-2011-000908

PATIENT
  Sex: 0

DRUGS (7)
  1. INCIVEK [Suspect]
     Indication: HEPATITIS C
     Route: 048
     Dates: start: 201107
  2. PEGASYS [Concomitant]
     Indication: HEPATITIS C
     Route: 058
     Dates: start: 201107
  3. RIBAVIRIN [Concomitant]
     Indication: HEPATITIS C
     Dates: start: 201107
  4. MORPHINE [Concomitant]
     Route: 048
     Dates: start: 2010
  5. FLEXERIL [Concomitant]
     Dates: start: 2010
  6. PHENERGAN [Concomitant]
     Dates: start: 2010
  7. OXYCODONE [Concomitant]
     Dates: start: 2010

REACTIONS (3)
  - Gait disturbance [Unknown]
  - Neck pain [Unknown]
  - Asthenia [Unknown]
